FAERS Safety Report 5366126-3 (Version None)
Quarter: 2007Q2

REPORT INFORMATION
  Report Type: 
  Country: None (occurrence: None)
  Receive Date: 20070516
  Receipt Date: 20061220
  Transmission Date: 20071010
  Serious: Yes (Hospitalization)
  Sender: FDA-Public Use
  Company Number: 259170

PATIENT
  Age: 2 Year
  Sex: Male

DRUGS (8)
  1. NOVOSEVEN [Suspect]
     Indication: TONGUE HAEMORRHAGE
     Dosage: SEE IMAGE, INTRAVENOUS
     Route: 042
     Dates: start: 20061202, end: 20061202
  2. NOVOSEVEN [Suspect]
     Indication: TONGUE HAEMORRHAGE
     Dosage: SEE IMAGE, INTRAVENOUS
     Route: 042
     Dates: start: 20061202, end: 20061204
  3. FEIBA [Concomitant]
  4. AMICAR [Concomitant]
  5. RED BLOOD CELLS, LEUCOCYTE DEPLETED (RED BLOOD CELLS, LEUCOCYTE DEPLET [Concomitant]
  6. PLATELETS [Concomitant]
  7. CRYOPRECIPITATES (FACTOR VIII (ANTIHAEMOPHILIC FACTOR)) [Concomitant]
  8. SODIUM CHLORIDE [Concomitant]

REACTIONS (1)
  - THERAPEUTIC RESPONSE DECREASED [None]
